FAERS Safety Report 9709458 (Version 1)
Quarter: 2013Q4

REPORT INFORMATION
  Report Type: Spontaneous
  Country: IN (occurrence: IN)
  Receive Date: 20131126
  Receipt Date: 20131126
  Transmission Date: 20140711
  Serious: Yes (Hospitalization, Other)
  Sender: FDA-Public Use
  Company Number: IN-ROCHE-1307823

PATIENT
  Age: 52 Year
  Sex: Male

DRUGS (5)
  1. METALYSE [Suspect]
     Indication: ACUTE MYOCARDIAL INFARCTION
     Route: 042
     Dates: start: 20131113
  2. ENOXAPARIN [Concomitant]
  3. DOBUTAMINE [Concomitant]
  4. DISPRIN [Concomitant]
  5. CLOPIDOGREL [Concomitant]

REACTIONS (3)
  - Electrocardiogram ST segment abnormal [Unknown]
  - Drug ineffective [Unknown]
  - Pain [Unknown]
